FAERS Safety Report 4364410-3 (Version None)
Quarter: 2004Q2

REPORT INFORMATION
  Report Type: 
  Country: None (occurrence: None)
  Receive Date: 20040520
  Receipt Date: 20040120
  Transmission Date: 20050107
  Serious: Yes (Hospitalization)
  Sender: FDA-Public Use
  Company Number: 2003176009US

PATIENT
  Age: 69 Year
  Sex: Female
  Weight: 86.2 kg

DRUGS (7)
  1. CALAN [Suspect]
     Indication: ATRIAL TACHYCARDIA
     Dosage: SEE IMAGE
  2. CALAN (VERAPMIL) TABLET [Suspect]
     Indication: ATRIAL TACHYCARDIA
     Dosage: 80 MG, QD
  3. DIGOXIN [Concomitant]
  4. COZAAR [Concomitant]
  5. DYAZIDE [Concomitant]
  6. SINGULAIR (MONTELKUSAT SODIUM) [Concomitant]
  7. ISOSORBIDE (ISOSORBIDE) [Concomitant]

REACTIONS (3)
  - BRADYCARDIA [None]
  - CHEST PAIN [None]
  - MALAISE [None]
